FAERS Safety Report 16202293 (Version 1)
Quarter: 2019Q2

REPORT INFORMATION
  Report Type: Spontaneous
  Country: DE (occurrence: DE)
  Receive Date: 20190416
  Receipt Date: 20190416
  Transmission Date: 20190711
  Serious: Yes (Hospitalization, Other)
  Sender: FDA-Public Use
  Company Number: DE-TORRENT-00006033

PATIENT
  Age: 29 Year
  Sex: Female

DRUGS (3)
  1. CLOZAPINE. [Suspect]
     Active Substance: CLOZAPINE
     Indication: SCHIZOPHRENIA
     Dosage: 250 MG PER DAY; 50 MG-0-200 MG-0
  2. OLANZAPINE. [Interacting]
     Active Substance: OLANZAPINE
     Indication: SCHIZOPHRENIA
     Dosage: 20 MG O.D.
  3. FLUVOXAMINE [Interacting]
     Active Substance: FLUVOXAMINE
     Indication: SCHIZOPHRENIA
     Dosage: 50 MG ONCE DAILY (O.D.)

REACTIONS (6)
  - Obsessive-compulsive disorder [Recovered/Resolved]
  - Overweight [Unknown]
  - Vision blurred [Recovered/Resolved]
  - Drug interaction [Unknown]
  - Dry mouth [Recovered/Resolved]
  - Constipation [Recovered/Resolved]
